FAERS Safety Report 5126087-9 (Version None)
Quarter: 2006Q4

REPORT INFORMATION
  Report Type: 
  Country: None (occurrence: None)
  Receive Date: 20061010
  Receipt Date: 20061010
  Transmission Date: 20070319
  Serious: Yes (Hospitalization)
  Sender: FDA-Public Use
  Company Number: None

PATIENT
  Sex: Male
  Weight: 111.2 kg

DRUGS (1)
  1. CISPLATIN [Suspect]
     Indication: OROPHARYNGEAL CANCER STAGE UNSPECIFIED
     Dosage: 233 MG

REACTIONS (4)
  - ASTHENIA [None]
  - CORONARY ARTERIAL STENT INSERTION [None]
  - ELECTROCARDIOGRAM ST SEGMENT ELEVATION [None]
  - PHARYNGOLARYNGEAL PAIN [None]
